FAERS Safety Report 4862539-4 (Version None)
Quarter: 2005Q4

REPORT INFORMATION
  Report Type: 
  Country: None (occurrence: None)
  Receive Date: 20051221
  Receipt Date: 20040310
  Transmission Date: 20060501
  Serious: Yes (Death)
  Sender: FDA-Public Use
  Company Number: HK-GLAXOSMITHKLINE-B0327030A

PATIENT
  Age: 54 Year
  Sex: Male
  Weight: 55 kg

DRUGS (4)
  1. LAMIVUDINE [Suspect]
     Indication: HEPATITIS B
     Dosage: 100MG PER DAY
     Route: 048
     Dates: start: 20000221, end: 20010406
  2. CYCLOSPORINE [Concomitant]
     Dosage: 100MG TWICE PER DAY
     Route: 048
     Dates: start: 20001220, end: 20010327
  3. PREDNISOLONE [Concomitant]
     Dosage: 5MG PER DAY
     Route: 048
     Dates: start: 20001220, end: 20010401
  4. RANITIDINE [Concomitant]
     Dosage: 150MG AT NIGHT
     Route: 048
     Dates: start: 20000220, end: 20010403

REACTIONS (13)
  - ALANINE AMINOTRANSFERASE INCREASED [None]
  - BLOOD BILIRUBIN INCREASED [None]
  - CHOLESTASIS [None]
  - DRUG INEFFECTIVE [None]
  - HBV DNA INCREASED [None]
  - HEPATIC FAILURE [None]
  - HEPATIC FUNCTION ABNORMAL [None]
  - HEPATITIS B [None]
  - HEPATITIS B VIRUS [None]
  - INTERNATIONAL NORMALISED RATIO INCREASED [None]
  - JAUNDICE [None]
  - LIVER TRANSPLANT REJECTION [None]
  - RENAL FAILURE [None]
